FAERS Safety Report 6254085-0 (Version None)
Quarter: 2009Q3

REPORT INFORMATION
  Report Type: 
  Country: None (occurrence: None)
  Receive Date: 20090702
  Receipt Date: 20090624
  Transmission Date: 20100115
  Serious: Yes (Hospitalization)
  Sender: FDA-Public Use
  Company Number: AU-ASTRAZENECA-2009SE02168

PATIENT
  Age: 673 Month
  Sex: Female

DRUGS (5)
  1. PRILOSEC [Suspect]
     Dates: start: 20020715
  2. PRILOSEC [Suspect]
     Dates: start: 20090601
  3. CRESTOR [Suspect]
     Route: 048
     Dates: start: 20090529, end: 20090601
  4. TAMBOCOR [Concomitant]
     Indication: ATRIAL FIBRILLATION
  5. LANOXIN [Concomitant]
     Indication: ATRIAL FIBRILLATION

REACTIONS (3)
  - CHEST DISCOMFORT [None]
  - CHEST PAIN [None]
  - HEART RATE INCREASED [None]
